FAERS Safety Report 19004095 (Version 2)
Quarter: 2022Q4

REPORT INFORMATION
  Report Type: Spontaneous
  Country: DE (occurrence: DE)
  Receive Date: 20210312
  Receipt Date: 20221020
  Transmission Date: 20230113
  Serious: Yes (Hospitalization)
  Sender: FDA-Public Use
  Company Number: DE-NOVARTISPH-NVSC2021DE051061

PATIENT
  Age: 84 Year
  Sex: Male

DRUGS (6)
  1. BISOPROLOL [Suspect]
     Active Substance: BISOPROLOL
     Indication: Product used for unknown indication
     Dosage: 2.5 MG, BID (1-0-1-0)
     Route: 065
  2. ANAMIRTA COCCULUS [Concomitant]
     Indication: Product used for unknown indication
     Dosage: (3-0-0-0, TROPFEN)
     Route: 048
  3. RAMIPRIL [Concomitant]
     Active Substance: RAMIPRIL
     Indication: Product used for unknown indication
     Dosage: 5 MG, BID (1-0-1-0)
     Route: 065
  4. CAMPHOR (SYNTHETIC)\MENTHOL [Concomitant]
     Active Substance: CAMPHOR (SYNTHETIC)\MENTHOL
     Indication: Product used for unknown indication
     Dosage: (973|25 MG, 10-0-0-0, TROPFEN)
     Route: 048
  5. ATORVASTATIN [Concomitant]
     Active Substance: ATORVASTATIN
     Indication: Product used for unknown indication
     Dosage: 40 MG, QD (0-0-1-0)
     Route: 065
  6. ASPIRIN [Concomitant]
     Active Substance: ASPIRIN
     Indication: Product used for unknown indication
     Dosage: 100 MG, QD (0-1-0-0)
     Route: 065

REACTIONS (5)
  - Arrhythmia [Unknown]
  - Hypertension [Unknown]
  - Atrioventricular block [Unknown]
  - Presyncope [Unknown]
  - Dizziness [Unknown]
